FAERS Safety Report 6151540-9 (Version None)
Quarter: 2009Q2

REPORT INFORMATION
  Report Type: 
  Country: None (occurrence: None)
  Receive Date: 20090410
  Receipt Date: 20090401
  Transmission Date: 20091009
  Serious: Yes (Other)
  Sender: FDA-Public Use
  Company Number: US-ROCHE-611786

PATIENT
  Sex: Female
  Weight: 57.2 kg

DRUGS (16)
  1. PEG-INTERFERON A-2A (RO 25-8310) [Suspect]
     Indication: HEPATITIS C
     Dosage: DOSE: 180 (NO UNITS), FORM: PFS; TAKEN EVERY MONDAY
     Route: 065
     Dates: start: 20081208
  2. RIBAVIRIN [Suspect]
     Indication: HEPATITIS C
     Dosage: DIVIDED DOSES; DOSE: 200; TAKEN 3  IN MORNING 2 EVERY NIGHT
     Route: 065
     Dates: start: 20081208
  3. FEXOFENADINE [Concomitant]
  4. PROAIR HFA [Concomitant]
  5. TRAZODONE HCL [Concomitant]
     Dosage: TAKEN AT BEDTIME
  6. OMEPRAZOLE [Concomitant]
     Dosage: TAKEN SINCE YEARS
  7. BISOPROLOL FUMARATE [Concomitant]
     Dosage: DOSE: 10-6.25; START SATE: 09
  8. AMLODIPINE [Concomitant]
  9. BENAZEPRIL HYDROCHLORIDE [Concomitant]
  10. CALCIUM [Concomitant]
  11. ASPIRIN [Concomitant]
  12. NASONEX [Concomitant]
     Dosage: ONE PUFF IN EACH NOSTRIL TAKEN SINCE YEARS
  13. BUSPIRONE HCL [Concomitant]
     Dosage: TAKEN HALF TABLET TWICE DAILY SINCE YEARS
  14. TRAVATAN [Concomitant]
  15. ALENDRONATE SODIUM [Concomitant]
     Dosage: DRUG NAME: ALENDRAONATE; TAKEN SINCE YEARS
  16. DICLOFENAC SODIUM [Concomitant]

REACTIONS (18)
  - ABDOMINAL PAIN [None]
  - ASTHENIA [None]
  - BONE DISORDER [None]
  - CHEST PAIN [None]
  - CONSTIPATION [None]
  - FEELING OF BODY TEMPERATURE CHANGE [None]
  - GENITAL RASH [None]
  - HEADACHE [None]
  - HYPOTENSION [None]
  - MUSCULOSKELETAL PAIN [None]
  - NAUSEA [None]
  - OEDEMA PERIPHERAL [None]
  - PRURITUS GENERALISED [None]
  - SINUSITIS [None]
  - THROMBOSIS [None]
  - VISUAL ACUITY REDUCED [None]
  - VOMITING [None]
  - WEIGHT DECREASED [None]
